FAERS Safety Report 19996335 (Version 1)
Quarter: 2021Q4

REPORT INFORMATION
  Report Type: Spontaneous
  Country: SI (occurrence: SI)
  Receive Date: 20211026
  Receipt Date: 20211026
  Transmission Date: 20220303
  Serious: Yes (Hospitalization, Other)
  Sender: FDA-Public Use
  Company Number: SI-VIRTUS PHARMACEUTICALS, LLC-2021VTS00051

PATIENT
  Age: 51 Year
  Sex: Male

DRUGS (1)
  1. TRANEXAMIC ACID [Suspect]
     Active Substance: TRANEXAMIC ACID
     Dosage: 350 MG, ONCE (3.5 ML)
     Route: 037

REACTIONS (10)
  - Cardiotoxicity [Unknown]
  - Neurotoxicity [Recovering/Resolving]
  - Myoclonic epilepsy [Recovered/Resolved]
  - Hypertension [Unknown]
  - Urinary retention [Recovered/Resolved]
  - Paralysis [Recovering/Resolving]
  - Paresis [Recovering/Resolving]
  - Cauda equina syndrome [Recovered/Resolved]
  - Encephalopathy [Recovered/Resolved]
  - Wrong product administered [Recovered/Resolved]
